FAERS Safety Report 8611041-2 (Version None)
Quarter: 2012Q3

REPORT INFORMATION
  Report Type: 
  Country: None (occurrence: None)
  Receive Date: 20120822
  Receipt Date: 20120816
  Transmission Date: 20120928
  Serious: Yes (Hospitalization)
  Sender: FDA-Public Use
  Company Number: NL-PFIZER INC-2012201535

PATIENT
  Age: 62 Year
  Sex: Male

DRUGS (5)
  1. OMEPRAZOLE [Concomitant]
     Dosage: 20 MG, 1X/DAY
  2. FRAGMIN [Concomitant]
     Dosage: 0.6 ML, 1X/DAY
     Dates: start: 20111130
  3. SUTENT [Suspect]
     Indication: RENAL CELL CARCINOMA
     Dosage: 50 MG, 1X/DAY
     Dates: start: 20120319, end: 20120410
  4. DICLOFENAC SODIUM [Concomitant]
     Dosage: 50 MG, AS NEEDED
     Dates: start: 20110101
  5. FERROFUMARAT [Concomitant]
     Dosage: 200 MG, 2X/DAY

REACTIONS (3)
  - HAEMATURIA [None]
  - EPISTAXIS [None]
  - PANCYTOPENIA [None]
